FAERS Safety Report 10052946 (Version 1)
Quarter: 2014Q2

REPORT INFORMATION
  Report Type: Other
  Country: US (occurrence: US)
  Receive Date: 20140402
  Receipt Date: 20140402
  Transmission Date: 20141212
  Serious: Yes (Other)
  Sender: FDA-Public Use
  Company Number: US-SHIRE-US201400762

PATIENT
  Age: 43 Year
  Sex: Female
  Weight: 80.73 kg

DRUGS (7)
  1. VYVANSE [Suspect]
     Indication: ATTENTION DEFICIT/HYPERACTIVITY DISORDER
     Dosage: 50 MG, 1X/DAY:QD
     Route: 048
     Dates: start: 2013, end: 2013
  2. VYVANSE [Suspect]
     Dosage: 60 MG, 1X/DAY:QD
     Route: 048
     Dates: start: 2013, end: 2013
  3. VYVANSE [Suspect]
     Dosage: 70 MG, 1X/DAY:QD
     Route: 048
     Dates: start: 2013, end: 201402
  4. MINOCYCLINE [Concomitant]
     Indication: ROSACEA
     Dosage: 200 MG (TWO 100 MG CAPSULES), 1X/DAY:QD
     Route: 048
  5. PRAVASTATIN [Concomitant]
     Indication: BLOOD CHOLESTEROL INCREASED
     Dosage: 40 MG, 1X/DAY:QD
     Route: 065
  6. CITALOPRAM [Concomitant]
     Indication: DEPRESSION
     Dosage: 80 MG (TWO 40 MG), 1X/DAY:QD (IN THE MORNING)
     Route: 065
  7. DEXILANT [Concomitant]
     Indication: GASTROOESOPHAGEAL REFLUX DISEASE
     Dosage: 60 MG, 1X/DAY:QD
     Route: 065

REACTIONS (6)
  - Narcolepsy [Not Recovered/Not Resolved]
  - Therapeutic response changed [Unknown]
  - Hypertension [Recovering/Resolving]
  - Drug effect decreased [Recovered/Resolved]
  - Weight decreased [Not Recovered/Not Resolved]
  - Condition aggravated [Not Recovered/Not Resolved]
